FAERS Safety Report 9592842 (Version 1)
Quarter: 2013Q4

REPORT INFORMATION
  Report Type: Report from Study
  Country: US (occurrence: US)
  Receive Date: 20131004
  Receipt Date: 20131004
  Transmission Date: 20140711
  Serious: Yes (Hospitalization)
  Sender: FDA-Public Use
  Company Number: GXBR2013US001743

PATIENT
  Age: 79 Year
  Sex: Female
  Weight: 77.98 kg

DRUGS (8)
  1. DILTIAZEM HYDROCHLORIDE ACTAVIS [Suspect]
     Dosage: 240 MG, UNK
  2. DILTIAZEM HYDROCHLORIDE ACTAVIS [Suspect]
     Dosage: 180 MG, QD
  3. METOPROLOL SUCCINATE [Suspect]
  4. XARELTO [Suspect]
     Indication: CEREBROVASCULAR ACCIDENT PROPHYLAXIS
     Dosage: 20 MG, QD
     Dates: start: 2012, end: 201307
  5. XARELTO [Suspect]
     Dosage: 20 UNK, UNK
     Dates: start: 20130718, end: 20130822
  6. XARELTO [Suspect]
     Dosage: 15 UNK, UNK
     Dates: start: 2013
  7. XARELTO [Suspect]
     Dosage: 20 MG, QD
     Dates: start: 2013
  8. RESTASIS [Concomitant]
     Dosage: UNK DF, UNK

REACTIONS (10)
  - Haematochezia [Recovered/Resolved]
  - Gastrointestinal sounds abnormal [Recovered/Resolved]
  - Malaise [Recovering/Resolving]
  - Dizziness [Recovering/Resolving]
  - Feeling abnormal [Recovering/Resolving]
  - Asthenia [Recovering/Resolving]
  - Fatigue [Recovering/Resolving]
  - Tooth fracture [Recovered/Resolved]
  - Tooth abscess [Recovered/Resolved]
  - Tenderness [Recovered/Resolved]
